FAERS Safety Report 23952952 (Version 2)
Quarter: 2024Q2

REPORT INFORMATION
  Report Type: Report from Study
  Country: US (occurrence: US)
  Receive Date: 20240608
  Receipt Date: 20240610
  Transmission Date: 20240716
  Serious: Yes (Death, Hospitalization, Other)
  Sender: FDA-Public Use
  Company Number: US-ABBVIE-5408169

PATIENT
  Age: 70 Year
  Sex: Female

DRUGS (4)
  1. VENCLEXTA [Suspect]
     Active Substance: VENETOCLAX
     Indication: Acute myeloid leukaemia
     Dosage: STRENGTH 100 MG, TAKE 1 TABLET BY MOUTH DAILY FOR 14 DAYS OF EACH 28 DAY CYCLE
     Route: 048
  2. VENCLEXTA [Suspect]
     Active Substance: VENETOCLAX
     Indication: Acute myeloid leukaemia
     Dosage: STRENGTH 100 MG?TAKE 1 TABLET BY MOUTH (100MG) ONCE DAILY FOR FIRST 10 DAYS OF 7 WEEK? CYCLE
     Route: 048
  3. VENCLEXTA [Suspect]
     Active Substance: VENETOCLAX
     Indication: Acute myeloid leukaemia
     Dosage: TAKE 1 TABLET BY MOUTH DAILY FOR 10 DAYS OF EACH 28 DAY CYCLE?FORM STRENGTH: 100
     Route: 048
  4. VENCLEXTA [Suspect]
     Active Substance: VENETOCLAX
     Indication: Acute myeloid leukaemia
     Route: 048

REACTIONS (4)
  - Death [Fatal]
  - Off label use [Unknown]
  - Hospitalisation [Recovered/Resolved]
  - Hospice care [Unknown]

NARRATIVE: CASE EVENT DATE: 20220301
